FAERS Safety Report 6186217-7 (Version None)
Quarter: 2009Q2

REPORT INFORMATION
  Report Type: 
  Country: None (occurrence: None)
  Receive Date: 20090511
  Receipt Date: 20090429
  Transmission Date: 20091009
  Serious: Yes (Other)
  Sender: FDA-Public Use
  Company Number: PHHY2009BR16482

PATIENT
  Sex: Male
  Weight: 58 kg

DRUGS (5)
  1. FORASEQ [Suspect]
     Indication: EMPHYSEMA
     Dosage: UNK
     Dates: start: 20080401
  2. BAMIFIX [Concomitant]
     Indication: EMPHYSEMA
     Dosage: 600 MG, BID
     Route: 048
     Dates: start: 20080401
  3. PAROXETINE [Concomitant]
     Indication: DEPRESSION
     Dosage: 20 MG, QD
     Route: 048
     Dates: start: 20080401
  4. BALCOR [Concomitant]
     Dosage: 1 DF, Q12H
     Route: 048
     Dates: start: 20081101
  5. DEFLAZACORT [Concomitant]
     Dosage: 1 TABLET DAILY
     Route: 048
     Dates: start: 20081001

REACTIONS (9)
  - DRUG INEFFECTIVE [None]
  - DRY MOUTH [None]
  - ORAL CANDIDIASIS [None]
  - ORAL PAIN [None]
  - ORAL PRURITUS [None]
  - SKIN IRRITATION [None]
  - STOMATITIS [None]
  - THROAT IRRITATION [None]
  - UNDERDOSE [None]
